FAERS Safety Report 11383269 (Version 1)
Quarter: 2015Q3

REPORT INFORMATION
  Report Type: Spontaneous
  Country: US (occurrence: US)
  Receive Date: 20150814
  Receipt Date: 20150814
  Transmission Date: 20151125
  Serious: No
  Sender: FDA-Public Use
  Company Number: GXBR2015US001255

PATIENT
  Age: 64 Year
  Sex: Female
  Weight: 74.83 kg

DRUGS (4)
  1. BUPROPION. [Concomitant]
     Active Substance: BUPROPION
     Indication: ANXIETY
     Dosage: 400 MG, QD
     Dates: start: 2013
  2. CLONAZEPAM. [Concomitant]
     Active Substance: CLONAZEPAM
     Indication: INSOMNIA
     Dosage: 0.5 MG, PRN
     Dates: start: 201501
  3. PHENDIMETRAZINE TARTRATE TABLETS USP [Suspect]
     Active Substance: PHENDIMETRAZINE TARTRATE
     Indication: WEIGHT CONTROL
     Dosage: 1 TABLET, QD
     Route: 048
     Dates: start: 2014, end: 20150418
  4. BUPROPION. [Concomitant]
     Active Substance: BUPROPION
     Indication: DEPRESSION

REACTIONS (3)
  - Rash pruritic [Recovering/Resolving]
  - Skin haemorrhage [Recovering/Resolving]
  - Urticaria [Recovering/Resolving]

NARRATIVE: CASE EVENT DATE: 201503
